FAERS Safety Report 23191987 (Version 1)
Quarter: 2023Q4

REPORT INFORMATION
  Report Type: Spontaneous
  Country: US (occurrence: None)
  Receive Date: 20231115
  Receipt Date: 20231115
  Transmission Date: 20240109
  Serious: Yes (Other)
  Sender: FDA-Public Use
  Company Number: None

PATIENT
  Age: 40 Year
  Sex: Male

DRUGS (3)
  1. VIVITROL [Suspect]
     Active Substance: NALTREXONE
     Indication: Alcoholism
     Dosage: 380 MG EVERY 28 DAYS INTRAMUSCULAR?
     Route: 030
     Dates: start: 20230814
  2. VIVITROL [Suspect]
     Active Substance: NALTREXONE
     Indication: Drug use disorder
  3. VIVITROL [Suspect]
     Active Substance: NALTREXONE
     Indication: Dependence

REACTIONS (3)
  - Pain in extremity [None]
  - Gait inability [None]
  - Post procedural complication [None]

NARRATIVE: CASE EVENT DATE: 20231010
